FAERS Safety Report 18454188 (Version 1)
Quarter: 2020Q4

REPORT INFORMATION
  Report Type: Report from Study
  Country: AR (occurrence: AR)
  Receive Date: 20201102
  Receipt Date: 20201102
  Transmission Date: 20210114
  Serious: Yes (Hospitalization)
  Sender: FDA-Public Use
  Company Number: AR-JNJFOC-20201048514

PATIENT
  Age: 63 Year
  Sex: Female
  Weight: 83 kg

DRUGS (1)
  1. SIMPONI [Suspect]
     Active Substance: GOLIMUMAB
     Indication: PSORIATIC ARTHROPATHY
     Route: 058
     Dates: start: 20181119

REACTIONS (2)
  - Eventration repair [Recovering/Resolving]
  - Postoperative wound infection [Recovering/Resolving]

NARRATIVE: CASE EVENT DATE: 202010
